FAERS Safety Report 5207721-1 (Version None)
Quarter: 2006Q4

REPORT INFORMATION
  Report Type: 
  Country: None (occurrence: None)
  Receive Date: 20061030
  Receipt Date: 20060826
  Transmission Date: 20070319
  Serious: No
  Sender: FDA-Public Use
  Company Number: 2006CT000716

PATIENT
  Age: 52 Year
  Sex: Female
  Weight: 133.3575 kg

DRUGS (6)
  1. VENTAVIS [Suspect]
     Indication: PULMONARY HYPERTENSION
     Dosage: 5 UG; 6XD; INH
     Route: 055
     Dates: start: 20060406
  2. ALDACTONE [Concomitant]
  3. LASIX [Concomitant]
  4. WARFARIN SODIUM [Concomitant]
  5. TYLENOL [Concomitant]
  6. ATIVAN [Concomitant]

REACTIONS (2)
  - COUGH [None]
  - PRURITUS [None]
